FAERS Safety Report 20736120 (Version 1)
Quarter: 2022Q2

REPORT INFORMATION
  Report Type: Spontaneous
  Country: US (occurrence: US)
  Receive Date: 20220421
  Receipt Date: 20220421
  Transmission Date: 20220721
  Serious: No
  Sender: FDA-Public Use
  Company Number: US-BAYER-2022A049146

PATIENT
  Sex: Female

DRUGS (1)
  1. KYLEENA [Suspect]
     Active Substance: LEVONORGESTREL
     Dosage: 17.5?G/DAY
     Route: 015
     Dates: start: 20210701

REACTIONS (5)
  - Abdominal pain lower [None]
  - Hypomenorrhoea [None]
  - Vaginal haemorrhage [None]
  - Anxiety [None]
  - Nervousness [None]

NARRATIVE: CASE EVENT DATE: 20220401
